FAERS Safety Report 26081808 (Version 1)
Quarter: 2025Q4

REPORT INFORMATION
  Report Type: Spontaneous
  Country: US (occurrence: US)
  Receive Date: 20251124
  Receipt Date: 20251124
  Transmission Date: 20260118
  Serious: No
  Sender: PIRAMAL
  Company Number: US-PCCINC-2025-PPL-000645

PATIENT

DRUGS (1)
  1. GABLOFEN [Suspect]
     Active Substance: BACLOFEN
     Indication: Product used for unknown indication
     Dosage: 97 MICROGRAM, QD
     Route: 037

REACTIONS (4)
  - Clonus [Not Recovered/Not Resolved]
  - Muscle tightness [Not Recovered/Not Resolved]
  - Withdrawal syndrome [Not Recovered/Not Resolved]
  - Muscle spasticity [Not Recovered/Not Resolved]
